FAERS Safety Report 16753696 (Version 1)
Quarter: 2019Q3

REPORT INFORMATION
  Report Type: Other
  Country: GB (occurrence: GB)
  Receive Date: 20190829
  Receipt Date: 20190829
  Transmission Date: 20191005
  Serious: Yes (Hospitalization, Other)
  Sender: FDA-Public Use
  Company Number: GB-LUPIN PHARMACEUTICALS INC.-2019-05548

PATIENT
  Age: 83 Year
  Sex: Female

DRUGS (14)
  1. WARFARIN [Suspect]
     Active Substance: WARFARIN
     Dosage: UNK (DOSE REDUCED)
     Route: 048
  2. GLICLAZIDE [Concomitant]
     Active Substance: GLICLAZIDE
     Indication: PRODUCT USED FOR UNKNOWN INDICATION
     Dosage: UNK
     Route: 065
  3. METFORMIN [Concomitant]
     Active Substance: METFORMIN HYDROCHLORIDE
     Indication: PRODUCT USED FOR UNKNOWN INDICATION
     Dosage: UNK, MODIFIED RELEASE
     Route: 065
  4. PIVMECILLINAM [Suspect]
     Active Substance: AMDINOCILLIN PIVOXIL
     Dosage: 200 MILLIGRAM, TID (400MG STAT THEN 200MG THREE TIMES A DAY FOR 7 DOSES)
     Route: 048
  5. ATORVASTATIN [Concomitant]
     Active Substance: ATORVASTATIN
     Indication: PRODUCT USED FOR UNKNOWN INDICATION
     Dosage: UNK
     Route: 065
  6. CEFALEXIN [Suspect]
     Active Substance: CEPHALEXIN
     Indication: URINARY TRACT INFECTION
     Dosage: UNK
     Route: 048
     Dates: start: 20190622, end: 20190627
  7. BISOPROLOL [Concomitant]
     Active Substance: BISOPROLOL
     Indication: PRODUCT USED FOR UNKNOWN INDICATION
     Dosage: UNK
     Route: 065
  8. AMOXICILLIN. [Suspect]
     Active Substance: AMOXICILLIN
     Indication: URINARY TRACT INFECTION
     Dosage: 1500 MILLIGRAM, QD
     Route: 048
     Dates: start: 20190629, end: 20190703
  9. LEVOTHYROXINE. [Concomitant]
     Active Substance: LEVOTHYROXINE
     Indication: PRODUCT USED FOR UNKNOWN INDICATION
     Dosage: UNK
     Route: 065
  10. WARFARIN [Suspect]
     Active Substance: WARFARIN
     Indication: ATRIAL FIBRILLATION
     Dosage: UNK (AS PER INTERNATIONAL NORMALISED RATIO)
     Route: 048
  11. MEMANTINE. [Concomitant]
     Active Substance: MEMANTINE
     Indication: PRODUCT USED FOR UNKNOWN INDICATION
     Dosage: 20 MILLIGRAM, QD
     Route: 065
  12. PIVMECILLINAM [Suspect]
     Active Substance: AMDINOCILLIN PIVOXIL
     Indication: URINARY TRACT INFECTION
     Dosage: 400 MILLIGRAM (400MG STAT THEN 200MG THREE TIMES A DAY FOR 7 DOSES)
     Route: 048
     Dates: start: 20190720, end: 20190722
  13. CALCICHEW D3 [Concomitant]
     Active Substance: CALCIUM\CHOLECALCIFEROL
     Indication: PRODUCT USED FOR UNKNOWN INDICATION
     Dosage: UNK
     Route: 065
  14. NITROFURANTOIN. [Suspect]
     Active Substance: NITROFURANTOIN
     Indication: URINARY TRACT INFECTION
     Dosage: 200 MILLIGRAM, QD
     Route: 048
     Dates: start: 20190705, end: 20190707

REACTIONS (4)
  - Haematuria [Recovering/Resolving]
  - Rash [Recovering/Resolving]
  - International normalised ratio increased [Recovering/Resolving]
  - Diarrhoea [Recovering/Resolving]

NARRATIVE: CASE EVENT DATE: 20190707
